FAERS Safety Report 7105326-9 (Version None)
Quarter: 2010Q4

REPORT INFORMATION
  Report Type: 
  Country: None (occurrence: None)
  Receive Date: 20101116
  Receipt Date: 20101103
  Transmission Date: 20110411
  Serious: Yes (Hospitalization)
  Sender: FDA-Public Use
  Company Number: US-ELI_LILLY_AND_COMPANY-US201010000578

PATIENT
  Sex: Female

DRUGS (14)
  1. FORTEO [Suspect]
     Indication: OSTEOPOROSIS
     Dosage: 20 UG, DAILY (1/D)
     Dates: start: 20100909, end: 20101020
  2. DIURETICS [Concomitant]
  3. ALBUTEROL [Concomitant]
  4. ISOPTIN [Concomitant]
  5. IMODIUM [Concomitant]
  6. COUMADIN [Concomitant]
  7. VERAPAMIL [Concomitant]
  8. LOPERAMIDE [Concomitant]
  9. CLONAZEPAM [Concomitant]
  10. SINGULAIR [Concomitant]
  11. SIMVASTATIN [Concomitant]
  12. SYNTHROID [Concomitant]
  13. AMBIEN [Concomitant]
  14. ACETAMINOPHEN [Concomitant]

REACTIONS (7)
  - DIARRHOEA [None]
  - FLUID RETENTION [None]
  - GOUT [None]
  - INTESTINAL OBSTRUCTION [None]
  - JOINT SWELLING [None]
  - MUSCLE SPASMS [None]
  - WEIGHT INCREASED [None]
